APPROVED DRUG PRODUCT: RYBIX ODT
Active Ingredient: TRAMADOL HYDROCHLORIDE
Strength: 50MG
Dosage Form/Route: TABLET, ORALLY DISINTEGRATING;ORAL
Application: N021693 | Product #001
Applicant: SHIONOGI INC
Approved: May 5, 2005 | RLD: No | RS: No | Type: DISCN